FAERS Safety Report 17956511 (Version 1)
Quarter: 2020Q2

REPORT INFORMATION
  Report Type: Spontaneous
  Country: US (occurrence: US)
  Receive Date: 20200629
  Receipt Date: 20200629
  Transmission Date: 20200714
  Serious: Yes (Hospitalization)
  Sender: FDA-Public Use
  Company Number: US-TEVA-2020-US-1793297

PATIENT
  Age: 27 Year
  Sex: Male
  Weight: 80 kg

DRUGS (6)
  1. PREDNISONE. [Suspect]
     Active Substance: PREDNISONE
     Indication: OVERDOSE
     Dosage: 10MG 30 TABLETS
     Route: 048
  2. METHOTREXATE. [Suspect]
     Active Substance: METHOTREXATE
     Indication: SUICIDE ATTEMPT
  3. HYDROXYCHLOROQUINE [Suspect]
     Active Substance: HYDROXYCHLOROQUINE
     Indication: OVERDOSE
     Dosage: 200MG 20 TABLETS
     Route: 048
  4. METHOTREXATE. [Suspect]
     Active Substance: METHOTREXATE
     Indication: OVERDOSE
     Dosage: 2.5MG 30 TABLETS
     Route: 048
  5. HYDROXYCHLOROQUINE [Suspect]
     Active Substance: HYDROXYCHLOROQUINE
     Indication: SUICIDE ATTEMPT
  6. PREDNISONE. [Suspect]
     Active Substance: PREDNISONE
     Indication: SUICIDE ATTEMPT

REACTIONS (12)
  - Overdose [Unknown]
  - Ventricular tachycardia [Recovering/Resolving]
  - Electrocardiogram QT prolonged [Recovering/Resolving]
  - Hypokalaemia [Recovered/Resolved]
  - Toxicity to various agents [Recovering/Resolving]
  - Electrocardiogram QRS complex prolonged [Recovering/Resolving]
  - Somnolence [Unknown]
  - Haematotoxicity [Recovering/Resolving]
  - Suicide attempt [Unknown]
  - Vomiting [Unknown]
  - Nausea [Unknown]
  - Muscular weakness [Unknown]
